FAERS Safety Report 25528092 (Version 3)
Quarter: 2025Q3

REPORT INFORMATION
  Report Type: Report from Study
  Country: CN (occurrence: CN)
  Receive Date: 20250708
  Receipt Date: 20250709
  Transmission Date: 20251020
  Serious: Yes (Other)
  Sender: BEIGENE
  Company Number: CN-BEIGENE-BGN-2025-010420

PATIENT
  Age: 70 Year

DRUGS (1)
  1. TISLELIZUMAB [Suspect]
     Active Substance: TISLELIZUMAB
     Indication: Lung neoplasm malignant
     Dosage: 200 MILLIGRAM, Q3WK

REACTIONS (6)
  - Erythema [Recovering/Resolving]
  - Skin exfoliation [Recovering/Resolving]
  - Skin disorder [Recovering/Resolving]
  - Skin erosion [Recovering/Resolving]
  - Pruritus [Recovering/Resolving]
  - Skin weeping [Recovering/Resolving]
